FAERS Safety Report 5909916-8 (Version None)
Quarter: 2008Q4

REPORT INFORMATION
  Report Type: 
  Country: None (occurrence: None)
  Receive Date: 20081006
  Receipt Date: 20081006
  Transmission Date: 20090506
  Serious: No
  Sender: FDA-Public Use
  Company Number: None

PATIENT

DRUGS (1)
  1. OYSTER SHELL CALCIUM + D 500MG/400 UNITS NATIONAL VITAMIN COMPANY [Suspect]
     Dates: start: 20080518, end: 20081003

REACTIONS (2)
  - MEDICATION ERROR [None]
  - PRODUCT QUALITY ISSUE [None]
